FAERS Safety Report 10996475 (Version 1)
Quarter: 2015Q2

REPORT INFORMATION
  Report Type: Spontaneous
  Country: None (occurrence: None)
  Receive Date: 20150407
  Receipt Date: 20150407
  Transmission Date: 20150821
  Serious: Yes (Hospitalization, Disabling, Other)
  Sender: FDA-Public Use
  Company Number: None

PATIENT
  Age: 61 Year
  Sex: Male
  Weight: 85 kg

DRUGS (5)
  1. CANDESARTAN [Concomitant]
     Active Substance: CANDESARTAN
  2. BENDROFLUMETHIAZIDE [Concomitant]
     Active Substance: BENDROFLUMETHIAZIDE
  3. ASPIRIN. [Concomitant]
     Active Substance: ASPIRIN
  4. AMLODIPINE [Concomitant]
     Active Substance: AMLODIPINE BESYLATE
  5. TYPHIM VI [Suspect]
     Active Substance: SALMONELLA TYPHI TY2 VI POLYSACCHARIDE ANTIGEN
     Indication: PRODUCT USED FOR UNKNOWN INDICATION
     Dosage: INTO A VEIN
     Dates: start: 20120119, end: 20120119

REACTIONS (12)
  - Dizziness [None]
  - Syncope [None]
  - Visual impairment [None]
  - Feeling abnormal [None]
  - Listless [None]
  - Asthenia [None]
  - Blood pressure [None]
  - Vomiting [None]
  - Eye disorder [None]
  - Hyperhidrosis [None]
  - Fall [None]
  - Headache [None]

NARRATIVE: CASE EVENT DATE: 20150406
